APPROVED DRUG PRODUCT: VINBLASTINE SULFATE
Active Ingredient: VINBLASTINE SULFATE
Strength: 1MG/ML
Dosage Form/Route: INJECTABLE;INJECTION
Application: A089515 | Product #001
Applicant: FRESENIUS KABI USA LLC
Approved: Apr 29, 1987 | RLD: No | RS: Yes | Type: RX